FAERS Safety Report 4488255-9 (Version None)
Quarter: 2004Q4

REPORT INFORMATION
  Report Type: 
  Country: None (occurrence: None)
  Receive Date: 20041028
  Receipt Date: 20041022
  Transmission Date: 20050328
  Serious: Yes (Other)
  Sender: FDA-Public Use
  Company Number: PHFR2004GB03961

PATIENT

DRUGS (1)
  1. DIOVAN [Suspect]
     Dosage: 80MG/DAY
     Route: 048

REACTIONS (3)
  - ABDOMINAL PAIN UPPER [None]
  - COELIAC DISEASE [None]
  - CONDITION AGGRAVATED [None]
